FAERS Safety Report 5422321-6 (Version None)
Quarter: 2007Q3

REPORT INFORMATION
  Report Type: 
  Country: None (occurrence: None)
  Receive Date: 20070727
  Receipt Date: 20061128
  Transmission Date: 20080115
  Serious: Yes (Other)
  Sender: FDA-Public Use
  Company Number: MYVW-PR-0611S-0056

PATIENT
  Age: 84 Year
  Sex: Male

DRUGS (2)
  1. MYOVIEW [Suspect]
     Indication: DRUG USE FOR UNKNOWN INDICATION
     Dosage: 259 MEQ, SINGLE DOSE, I.V.
     Route: 042
     Dates: start: 20061122, end: 20061122
  2. TECHNETIUM (TC99M) GENERATOR (TECHNELITE - BMS) (SODIUM PERTECHNETATE [Concomitant]

REACTIONS (1)
  - ANAPHYLACTOID REACTION [None]
